FAERS Safety Report 6568888-6 (Version None)
Quarter: 2010Q1

REPORT INFORMATION
  Report Type: 
  Country: None (occurrence: None)
  Receive Date: 20100201
  Receipt Date: 20100201
  Transmission Date: 20100710
  Serious: Yes (Other)
  Sender: FDA-Public Use
  Company Number: None

PATIENT
  Sex: Male
  Weight: 74.8435 kg

DRUGS (1)
  1. DILTIAZEM [Suspect]
     Indication: ARRHYTHMIA
     Dosage: 180 MG 1/DAY
     Dates: start: 20091020, end: 20091120

REACTIONS (4)
  - OEDEMA PERIPHERAL [None]
  - PRODUCT SUBSTITUTION ISSUE [None]
  - SKIN LESION [None]
  - WEIGHT INCREASED [None]
